FAERS Safety Report 24349998 (Version 1)
Quarter: 2024Q3

REPORT INFORMATION
  Report Type: Spontaneous
  Country: US (occurrence: US)
  Receive Date: 20240923
  Receipt Date: 20240923
  Transmission Date: 20241016
  Serious: No
  Sender: TEVA
  Company Number: US-TEVA-VS-3240000

PATIENT
  Age: 52 Year
  Sex: Male
  Weight: 88.45 kg

DRUGS (2)
  1. RASAGILINE [Suspect]
     Active Substance: RASAGILINE\RASAGILINE MESYLATE
     Indication: Parkinson^s disease
     Route: 065
     Dates: start: 20240603, end: 20240620
  2. RASAGILINE [Suspect]
     Active Substance: RASAGILINE\RASAGILINE MESYLATE
     Indication: Parkinson^s disease
     Route: 065
     Dates: start: 20240413

REACTIONS (2)
  - Speech disorder [Not Recovered/Not Resolved]
  - Speech sound disorder [Not Recovered/Not Resolved]

NARRATIVE: CASE EVENT DATE: 20240603
